FAERS Safety Report 6233234-4 (Version None)
Quarter: 2009Q2

REPORT INFORMATION
  Report Type: 
  Country: None (occurrence: None)
  Receive Date: 20090617
  Receipt Date: 20090605
  Transmission Date: 20091009
  Serious: Yes (Death)
  Sender: FDA-Public Use
  Company Number: DE-WYE-H09749509

PATIENT

DRUGS (1)
  1. TYGACIL [Suspect]
     Indication: FEBRILE NEUTROPENIA
     Dosage: UNKNOWN

REACTIONS (1)
  - INFECTION [None]
